FAERS Safety Report 9817718 (Version 1)
Quarter: 2014Q1

REPORT INFORMATION
  Report Type: Spontaneous
  Country: US (occurrence: None)
  Receive Date: 20140110
  Receipt Date: 20140110
  Transmission Date: 20141002
  Serious: No
  Sender: FDA-Public Use
  Company Number: None

PATIENT
  Age: 55 Year
  Sex: Male

DRUGS (2)
  1. LISINOPRIL [Suspect]
     Indication: DRUG THERAPY
     Dosage: 1 BOTTLE
     Route: 048
  2. AMLODIPINE [Suspect]
     Dosage: 1 BOTTLE
     Route: 048

REACTIONS (1)
  - Circumstance or information capable of leading to medication error [None]
